FAERS Safety Report 5644077-4 (Version None)
Quarter: 2008Q1

REPORT INFORMATION
  Report Type: 
  Country: None (occurrence: None)
  Receive Date: 20080226
  Receipt Date: 20080215
  Transmission Date: 20080703
  Serious: No
  Sender: FDA-Public Use
  Company Number: B0508497A

PATIENT
  Age: 44 Year
  Sex: Female
  Weight: 48.4895 kg

DRUGS (2)
  1. LAPATINIB TABLET (LAPATINIB) [Suspect]
     Indication: BREAST CANCER
     Dosage: ORAL
     Route: 048
     Dates: start: 20070918
  2. TRASTUZUMAB (FORMULATION UNKNOWN)(TRASTUZUMAB) [Suspect]
     Indication: BREAST CANCER
     Dosage: SEE IMAGE
     Route: 042
     Dates: start: 20070918

REACTIONS (2)
  - ALANINE AMINOTRANSFERASE INCREASED [None]
  - ASPARTATE AMINOTRANSFERASE INCREASED [None]
